FAERS Safety Report 5027079-0 (Version None)
Quarter: 2006Q2

REPORT INFORMATION
  Report Type: 
  Country: None (occurrence: None)
  Receive Date: 20060612
  Receipt Date: 20060530
  Transmission Date: 20061013
  Serious: Yes (Other)
  Sender: FDA-Public Use
  Company Number: HQWYE203816JUL04

PATIENT
  Age: 58 Year
  Sex: Female
  Weight: 61.29 kg

DRUGS (3)
  1. PREMARIN [Suspect]
     Indication: HOT FLUSH
     Dosage: ^0.5MG^, ORAL
     Route: 048
     Dates: start: 19970101, end: 19970101
  2. PREMARIN [Suspect]
     Indication: INSOMNIA
     Dosage: ^0.5MG^, ORAL
     Route: 048
     Dates: start: 19970101, end: 19970101
  3. PREMARIN [Suspect]
     Indication: VULVOVAGINAL DRYNESS
     Dosage: ^0.5MG^, ORAL
     Route: 048
     Dates: start: 19970101, end: 19970101

REACTIONS (7)
  - BREAST CANCER FEMALE [None]
  - BREAST CANCER STAGE II [None]
  - HEART RATE INCREASED [None]
  - METASTASES TO LYMPH NODES [None]
  - OESTROGEN RECEPTOR ASSAY POSITIVE [None]
  - OVARIAN CANCER METASTATIC [None]
  - PROGESTERONE RECEPTOR ASSAY POSITIVE [None]
